FAERS Safety Report 7120887-1 (Version None)
Quarter: 2010Q4

REPORT INFORMATION
  Report Type: 
  Country: None (occurrence: None)
  Receive Date: 20101124
  Receipt Date: 20091208
  Transmission Date: 20110411
  Serious: No
  Sender: FDA-Public Use
  Company Number: US-PFIZER INC-2009308274

PATIENT
  Sex: Male
  Weight: 104.3 kg

DRUGS (17)
  1. TIKOSYN [Suspect]
     Indication: ATRIAL FIBRILLATION
     Dosage: 500 UG, 2X/DAY
     Dates: start: 20091201
  2. HYDROCHLOROTHIAZIDE [Concomitant]
     Dates: end: 20091130
  3. DIGOXIN [Concomitant]
     Dates: end: 20091130
  4. TOPROL-XL [Concomitant]
     Dosage: 100 MG, 2X/DAY
  5. AVAPRO [Concomitant]
     Dosage: 150 MG, DAILY
  6. AVAPRO [Concomitant]
     Dosage: 150 MG, DAILY
  7. ZOCOR [Concomitant]
     Dosage: 40MG, DAILY
  8. ACETYLSALICYLIC ACID [Concomitant]
     Dosage: UNK
  9. WARFARIN SODIUM [Concomitant]
     Dosage: UNK
  10. TERAZOSIN [Concomitant]
     Dosage: 5 MG, UNK
  11. XANAX [Concomitant]
     Indication: ANXIETY
     Dosage: UNK
  12. PEPCID [Concomitant]
     Dates: start: 20091101, end: 20091101
  13. ASCORBIC ACID [Concomitant]
     Dosage: UNK
  14. STOOL SOFTENER [Concomitant]
     Dosage: UNK
  15. VICODIN [Concomitant]
     Dosage: UNK
  16. AMBIEN [Concomitant]
     Indication: INSOMNIA
     Dosage: UNK
  17. MELATONIN [Concomitant]
     Indication: INSOMNIA
     Dates: start: 20091101, end: 20091101

REACTIONS (3)
  - HYPERTENSION [None]
  - NASOPHARYNGITIS [None]
  - SINUS DISORDER [None]
